FAERS Safety Report 10583036 (Version 1)
Quarter: 2014Q4

REPORT INFORMATION
  Report Type: Spontaneous
  Country: US (occurrence: US)
  Receive Date: 20141114
  Receipt Date: 20141114
  Transmission Date: 20150529
  Serious: No
  Sender: FDA-Public Use
  Company Number: US-009507513-1410USA010770

PATIENT
  Sex: Female

DRUGS (4)
  1. FOLLITROPIN BETA [Suspect]
     Active Substance: FOLLITROPIN
     Dosage: ^HALF^ OF HER DOSE
     Route: 058
  2. FOLLISTIM [Suspect]
     Active Substance: FOLLITROPIN
     Dosage: 300IU/UNSPECIFIED FREQUENCY
     Route: 058
  3. FOLLITROPIN BETA [Suspect]
     Active Substance: FOLLITROPIN
     Indication: PRODUCT USED FOR UNKNOWN INDICATION
     Dosage: 300IU/UNSPECIFIED FREQUENCY
     Route: 058
  4. FOLLISTIM [Suspect]
     Active Substance: FOLLITROPIN
     Dosage: ^HALF^ OF HER DOSE
     Route: 058

REACTIONS (4)
  - Device malfunction [Unknown]
  - Drug dose omission [Unknown]
  - Drug administered in wrong device [Unknown]
  - Underdose [Unknown]
